FAERS Safety Report 24144959 (Version 1)
Quarter: 2024Q3

REPORT INFORMATION
  Report Type: Spontaneous
  Country: US (occurrence: US)
  Receive Date: 20240729
  Receipt Date: 20240729
  Transmission Date: 20241016
  Serious: No
  Sender: ENDO
  Company Number: ENDG23-06550

PATIENT
  Sex: Male

DRUGS (1)
  1. LABETALOL HYDROCHLORIDE [Suspect]
     Active Substance: LABETALOL\LABETALOL HYDROCHLORIDE
     Indication: Blood pressure management
     Dosage: 400 MILLIGRAM, DAILY (ONE TABLET IN THE MORNING AND ONE AT NIGHT)
     Route: 065

REACTIONS (1)
  - Cough [Not Recovered/Not Resolved]
